FAERS Safety Report 15854606 (Version 4)
Quarter: 2020Q1

REPORT INFORMATION
  Report Type: Spontaneous
  Country: DE (occurrence: DE)
  Receive Date: 20190122
  Receipt Date: 20200120
  Transmission Date: 20200409
  Serious: Yes (Hospitalization, Other)
  Sender: FDA-Public Use
  Company Number: DE-PFIZER INC-2019019209

PATIENT
  Age: 62 Year
  Sex: Male

DRUGS (19)
  1. METHOTREXATE SODIUM. [Suspect]
     Active Substance: METHOTREXATE SODIUM
     Dosage: 15 MG, UNK
     Route: 058
     Dates: start: 201010
  2. PREDNISOLONE. [Suspect]
     Active Substance: PREDNISOLONE
     Dosage: LOW-DOSE
     Route: 048
  3. CERTOLIZUMAB [Suspect]
     Active Substance: CERTOLIZUMAB
     Dosage: UNK
     Route: 065
     Dates: start: 201007
  4. GOLIMUMAB [Suspect]
     Active Substance: GOLIMUMAB
     Dosage: UNK
     Route: 058
     Dates: start: 201103
  5. METHOTREXATE SODIUM. [Suspect]
     Active Substance: METHOTREXATE SODIUM
     Dosage: 15 MG, UNK
     Route: 058
     Dates: start: 201103
  6. TOFACITINIB [Suspect]
     Active Substance: TOFACITINIB
     Dosage: UNK
     Route: 065
  7. TOFACITINIB [Suspect]
     Active Substance: TOFACITINIB
     Dosage: UNK
     Route: 065
     Dates: start: 201711
  8. ABATACEPT [Suspect]
     Active Substance: ABATACEPT
     Dosage: UNK
     Route: 065
  9. METHOTREXATE SODIUM. [Suspect]
     Active Substance: METHOTREXATE SODIUM
     Dosage: 15 MG, WEEKLY
     Route: 058
     Dates: start: 201010
  10. CERTOLIZUMAB [Suspect]
     Active Substance: CERTOLIZUMAB
     Dosage: UNK
     Route: 065
  11. METHOTREXATE SODIUM. [Suspect]
     Active Substance: METHOTREXATE SODIUM
     Dosage: 25 MG, UNK
     Route: 058
  12. INFLIXIMAB [Suspect]
     Active Substance: INFLIXIMAB
     Dosage: UNK
     Route: 065
     Dates: start: 200802
  13. METHOTREXATE SODIUM. [Suspect]
     Active Substance: METHOTREXATE SODIUM
     Dosage: 15 MG, WEEKLY
     Route: 058
     Dates: start: 201103
  14. ETANERCEPT [Suspect]
     Active Substance: ETANERCEPT
     Indication: PSORIASIS
     Dosage: UNK
     Route: 065
  15. RITUXIMAB. [Suspect]
     Active Substance: RITUXIMAB
     Dosage: UNK
     Route: 065
  16. GOLIMUMAB [Suspect]
     Active Substance: GOLIMUMAB
     Dosage: UNK
     Route: 065
  17. ETANERCEPT [Suspect]
     Active Substance: ETANERCEPT
     Dosage: UNK
     Route: 065
     Dates: start: 200710
  18. RITUXIMAB. [Suspect]
     Active Substance: RITUXIMAB
     Dosage: UNK
     Route: 065
     Dates: start: 200808
  19. TOCILIZUMAB. [Suspect]
     Active Substance: TOCILIZUMAB
     Dosage: UNK
     Route: 042

REACTIONS (15)
  - Infection [Unknown]
  - Rheumatoid factor [Unknown]
  - Lower gastrointestinal haemorrhage [Unknown]
  - Chronic obstructive pulmonary disease [Unknown]
  - Drug ineffective [Unknown]
  - Gilbert^s syndrome [Unknown]
  - Hepatic steatosis [Unknown]
  - Depression [Unknown]
  - Rheumatoid factor increased [Unknown]
  - Rheumatoid arthritis [Unknown]
  - Arthritis [Unknown]
  - Oral herpes [Unknown]
  - Blood bilirubin increased [Unknown]
  - Cardiac failure [Unknown]
  - Osteoporosis [Unknown]

NARRATIVE: CASE EVENT DATE: 200706
